FAERS Safety Report 4869081-5 (Version None)
Quarter: 2005Q4

REPORT INFORMATION
  Report Type: 
  Country: None (occurrence: None)
  Receive Date: 20051219
  Receipt Date: 20050916
  Transmission Date: 20060501
  Serious: Yes (Other)
  Sender: FDA-Public Use
  Company Number: 2005BH001841

PATIENT

DRUGS (1)
  1. TISSEEL VH KIT [Suspect]

REACTIONS (2)
  - SINUS DISORDER [None]
  - THROMBOSIS [None]
